FAERS Safety Report 17609428 (Version 5)
Quarter: 2020Q3

REPORT INFORMATION
  Report Type: Report from Study
  Country: US (occurrence: US)
  Receive Date: 20200401
  Receipt Date: 20200711
  Transmission Date: 20201102
  Serious: Yes (Other)
  Sender: FDA-Public Use
  Company Number: NVSC2020US085922

PATIENT
  Age: 78 Year
  Sex: Female

DRUGS (1)
  1. VOTRIENT [Suspect]
     Active Substance: PAZOPANIB HYDROCHLORIDE
     Indication: PRODUCT USED FOR UNKNOWN INDICATION
     Dosage: 800 MG, QD
     Route: 048
     Dates: start: 20200207

REACTIONS (4)
  - Rash [Unknown]
  - Drug ineffective [Unknown]
  - Neoplasm malignant [Unknown]
  - Swelling [Unknown]

NARRATIVE: CASE EVENT DATE: 20200325
